FAERS Safety Report 9841524 (Version 1)
Quarter: 2013Q4

REPORT INFORMATION
  Report Type: Spontaneous
  Country: US (occurrence: None)
  Receive Date: 20131211
  Receipt Date: 20131211
  Transmission Date: 20140711
  Serious: Yes (Other)
  Sender: FDA-Public Use
  Company Number: ALL1-2012-02828

PATIENT
  Age: 21 Year
  Sex: Male
  Weight: 72.6 kg

DRUGS (3)
  1. VYVANSE [Suspect]
     Indication: DISTURBANCE IN ATTENTION
     Route: 048
     Dates: start: 20120501, end: 20120501
  2. ROBINUL(GLYCOPYRRONIUM BROMIDE) [Concomitant]
  3. BACTRIM (SULFAMETHOXAZOLE, TRIMETHOPRIM) [Concomitant]

REACTIONS (1)
  - Hypersensitivity [None]
